FAERS Safety Report 23586536 (Version 1)
Quarter: 2024Q1

REPORT INFORMATION
  Report Type: Report from Study
  Country: SA (occurrence: SA)
  Receive Date: 20240301
  Receipt Date: 20240301
  Transmission Date: 20240410
  Serious: Yes (Hospitalization)
  Sender: FDA-Public Use
  Company Number: SA-GLAXOSMITHKLINE-SA2023EME010010

PATIENT

DRUGS (2)
  1. BELIMUMAB [Suspect]
     Active Substance: BELIMUMAB
     Indication: Systemic lupus erythematosus
     Dosage: 10 MG/KG, MO
     Route: 042
     Dates: start: 20211013, end: 20231001
  2. BELIMUMAB [Suspect]
     Active Substance: BELIMUMAB
     Dosage: 10 MG/KG (EVERY MONTH AND TWO WEEKS)
     Route: 042

REACTIONS (3)
  - Limb injury [Not Recovered/Not Resolved]
  - Pain in extremity [Unknown]
  - Inappropriate schedule of product administration [Unknown]
